FAERS Safety Report 7385366 (Version 5)
Quarter: 2012Q4

REPORT INFORMATION
  Report Type: 
  Country: US (occurrence: US)
  Receive Date: 20100512
  Receipt Date: 20120830
  Transmission Date: 20130627
  Serious: Yes (Hospitalization, Other)
  Sender: FDA-Public Use
  Company Number: US-ELI_LILLY_AND_COMPANY-US201005000632

PATIENT
  Sex: Male
  Weight: 99.77 kg

DRUGS (8)
  1. BYETTA [Suspect]
     Dosage: 5 ug, bid
     Route: 058
     Dates: start: 20060207
  2. BYETTA [Suspect]
     Dosage: 5 ug, bid
     Route: 058
     Dates: start: 20080331
  3. LIPITOR [Concomitant]
     Indication: BLOOD CHOLESTEROL
     Dosage: UNK
  4. METFORMIN [Concomitant]
  5. BENICAR [Concomitant]
     Indication: BLOOD PRESSURE
  6. LEVAQUIN [Concomitant]
     Indication: ANTIBIOTIC THERAPY
  7. FUROSEMIDE [Concomitant]
     Indication: DIURETIC THERAPY
  8. AVANDIA [Concomitant]

REACTIONS (4)
  - Renal failure [Unknown]
  - Pancreatitis [Unknown]
  - Motor dysfunction [Unknown]
  - Weight decreased [Unknown]
